FAERS Safety Report 16566497 (Version 1)
Quarter: 2019Q3

REPORT INFORMATION
  Report Type: Spontaneous
  Country: GR (occurrence: GR)
  Receive Date: 20190712
  Receipt Date: 20190712
  Transmission Date: 20191004
  Serious: Yes (Other)
  Sender: FDA-Public Use
  Company Number: GR-PFIZER INC-2019292939

PATIENT
  Age: 38 Year
  Sex: Male

DRUGS (3)
  1. ZOLEDRONIC ACID [Suspect]
     Active Substance: ZOLEDRONIC ACID
     Dosage: UNK
     Route: 065
     Dates: start: 201706
  2. ZOLEDRONIC ACID [Suspect]
     Active Substance: ZOLEDRONIC ACID
     Dosage: 4 MG, QMO
  3. MIDOSTAURIN [Suspect]
     Active Substance: MIDOSTAURIN
     Dosage: 2 DF, UNK
     Dates: start: 20180214

REACTIONS (13)
  - Biopsy bone marrow abnormal [Unknown]
  - Bone marrow reticulin fibrosis [Unknown]
  - Mastocytosis [Unknown]
  - Tryptase increased [Recovering/Resolving]
  - Nausea [Unknown]
  - Megakaryocytes abnormal [Recovering/Resolving]
  - Pain [Unknown]
  - Diarrhoea [Unknown]
  - Lymphadenopathy [Unknown]
  - Rash papular [Unknown]
  - Headache [Unknown]
  - Rash [Unknown]
  - Rash vesicular [Unknown]

NARRATIVE: CASE EVENT DATE: 201512
